FAERS Safety Report 6824934-3 (Version None)
Quarter: 2010Q3

REPORT INFORMATION
  Report Type: 
  Country: None (occurrence: None)
  Receive Date: 20100708
  Receipt Date: 20070103
  Transmission Date: 20110219
  Serious: No
  Sender: FDA-Public Use
  Company Number: US-PFIZER INC-2007002209

PATIENT
  Sex: Female
  Weight: 48.5 kg

DRUGS (5)
  1. CHANTIX [Suspect]
     Indication: SMOKING CESSATION THERAPY
     Dates: start: 20061201
  2. EVISTA [Concomitant]
  3. NEFAZODONE HCL [Concomitant]
  4. VITAMINS [Concomitant]
  5. LUTEIN [Concomitant]

REACTIONS (1)
  - NAUSEA [None]
